FAERS Safety Report 6757787-2 (Version None)
Quarter: 2010Q2

REPORT INFORMATION
  Report Type: 
  Country: None (occurrence: None)
  Receive Date: 20100604
  Receipt Date: 20100604
  Transmission Date: 20101027
  Serious: Yes (Life-Threatening, Hospitalization)
  Sender: FDA-Public Use
  Company Number: None

PATIENT
  Age: 72 Year
  Sex: Female
  Weight: 62 kg

DRUGS (8)
  1. METHYLENE BLUE INJ. 10 ML VIAL 1% -10MG/ML- AMERICAN REGENT, INC. SHIR [Suspect]
     Indication: PARATHYROIDECTOMY
     Dosage: 460 MG ONCE IV DRIP
     Route: 041
     Dates: start: 20100322, end: 20100322
  2. METHYLENE BLUE INJ. 10 ML VIAL 1% -10MG/ML- AMERICAN REGENT, INC. SHIR [Suspect]
     Indication: THYROIDECTOMY
     Dosage: 460 MG ONCE IV DRIP
     Route: 041
     Dates: start: 20100322, end: 20100322
  3. SYNTHROID [Concomitant]
  4. PROZAC [Concomitant]
  5. HCTZ [Concomitant]
  6. ATENOLOL [Concomitant]
  7. ACTOS [Concomitant]
  8. GLUCOVANCE [Concomitant]

REACTIONS (2)
  - POST PROCEDURAL COMPLICATION [None]
  - SEROTONIN SYNDROME [None]
